FAERS Safety Report 24686860 (Version 1)
Quarter: 2024Q4

REPORT INFORMATION
  Report Type: Spontaneous
  Country: EU (occurrence: EU)
  Receive Date: 20241202
  Receipt Date: 20241202
  Transmission Date: 20250115
  Serious: Yes (Hospitalization)
  Sender: ETHYPHARM
  Company Number: None

PATIENT

DRUGS (5)
  1. HEROIN [Suspect]
     Active Substance: DIAMORPHINE
     Route: 064
     Dates: end: 20221022
  2. OXAZEPAM [Suspect]
     Active Substance: OXAZEPAM
     Route: 064
     Dates: end: 20221022
  3. BUPRENORPHINE HYDROCHLORIDE [Suspect]
     Active Substance: BUPRENORPHINE HYDROCHLORIDE
     Route: 064
     Dates: end: 20221022
  4. NICOTINE\TOBACCO LEAF [Suspect]
     Active Substance: NICOTINE\TOBACCO LEAF
     Route: 064
     Dates: end: 20221022
  5. ALCOHOL [Suspect]
     Active Substance: ALCOHOL
     Route: 064
     Dates: end: 20221022

REACTIONS (4)
  - Foetal exposure timing unspecified [Recovered/Resolved]
  - Microencephaly [Unknown]
  - Cerebellar hypoplasia [Unknown]
  - Drug withdrawal syndrome neonatal [Recovered/Resolved]

NARRATIVE: CASE EVENT DATE: 20221025
